FAERS Safety Report 5337334-2 (Version None)
Quarter: 2007Q1

REPORT INFORMATION
  Report Type: 
  Country: None (occurrence: None)
  Receive Date: 20070312
  Receipt Date: 20061113
  Transmission Date: 20070707
  Serious: Yes (Other)
  Sender: FDA-Public Use
  Company Number: 2006-0010652

PATIENT
  Sex: Male

DRUGS (2)
  1. TRUVADA [Suspect]
  2. ATRIPLA [Suspect]

REACTIONS (1)
  - FANCONI SYNDROME ACQUIRED [None]
